FAERS Safety Report 7694527-7 (Version None)
Quarter: 2011Q3

REPORT INFORMATION
  Report Type: 
  Country: None (occurrence: None)
  Receive Date: 20110819
  Receipt Date: 20110810
  Transmission Date: 20111222
  Serious: Yes (Other)
  Sender: FDA-Public Use
  Company Number: US-ASTRAZENECA-2008UW27064

PATIENT
  Age: 71 Year
  Sex: Female
  Weight: 56.2 kg

DRUGS (7)
  1. LANOXIN [Concomitant]
  2. CRESTOR [Suspect]
     Indication: HYPERCHOLESTEROLAEMIA
     Route: 048
     Dates: start: 20100101, end: 20110305
  3. ZYRTEC [Concomitant]
  4. DILTIAZEM [Concomitant]
  5. PULMICORT FLEXHALER [Suspect]
     Route: 055
  6. PULMICORT FLEXHALER [Suspect]
     Route: 055
  7. SYMBICORT [Concomitant]

REACTIONS (7)
  - THYROID DISORDER [None]
  - EPISTAXIS [None]
  - DIABETES MELLITUS [None]
  - RASH [None]
  - DRUG INEFFECTIVE [None]
  - COUGH [None]
  - RASH GENERALISED [None]
